FAERS Safety Report 10018672 (Version 2)
Quarter: 2014Q1

REPORT INFORMATION
  Report Type: Spontaneous
  Country: DK (occurrence: DK)
  Receive Date: 20140318
  Receipt Date: 20140318
  Transmission Date: 20141002
  Serious: Yes (Hospitalization, Other)
  Sender: FDA-Public Use
  Company Number: DK-ABBVIE-13P-044-1141107-00

PATIENT
  Age: 18 Year
  Sex: Male
  Weight: 62.5 kg

DRUGS (5)
  1. HUMIRA [Suspect]
     Indication: CROHN^S DISEASE
     Dates: start: 20121001
  2. REMICADE [Suspect]
     Indication: CROHN^S DISEASE
     Dates: start: 20111117, end: 20121001
  3. PREDNISONE [Suspect]
     Indication: PRODUCT USED FOR UNKNOWN INDICATION
  4. AZATHIOPRINE [Suspect]
     Indication: PRODUCT USED FOR UNKNOWN INDICATION
  5. METHOTREXATE [Concomitant]
     Indication: PRODUCT USED FOR UNKNOWN INDICATION

REACTIONS (4)
  - Pseudopolyp [Unknown]
  - Cytomegalovirus infection [Not Recovered/Not Resolved]
  - Human herpesvirus 6 infection [Not Recovered/Not Resolved]
  - Crohn^s disease [Recovered/Resolved with Sequelae]
